FAERS Safety Report 23103615 (Version 2)
Quarter: 2023Q4

REPORT INFORMATION
  Report Type: Report from Study
  Country: PA (occurrence: PA)
  Receive Date: 20231025
  Receipt Date: 20231104
  Transmission Date: 20240110
  Serious: Yes (Other)
  Sender: FDA-Public Use
  Company Number: PA-002147023-NVSC2023PA227839

PATIENT
  Sex: Female

DRUGS (3)
  1. HYDROCHLOROTHIAZIDE\VALSARTAN [Suspect]
     Active Substance: HYDROCHLOROTHIAZIDE\VALSARTAN
     Indication: Hypertension
     Dosage: 320/12.5 MG, QD (STARTED MORE THAN 5 YEARS AGO)
     Route: 048
     Dates: start: 2016, end: 2023
  2. EXFORGE [Suspect]
     Active Substance: AMLODIPINE BESYLATE\VALSARTAN
     Indication: Hypertension
     Dosage: 160/5 MG, QD (STOPPED 3 MONTHS AGO)
     Route: 048
     Dates: start: 2023, end: 202307
  3. EXFORGE [Suspect]
     Active Substance: AMLODIPINE BESYLATE\VALSARTAN
     Dosage: 5/320 MG, QD (STARTED 3 MONTHS AGO)
     Route: 048
     Dates: start: 202307

REACTIONS (1)
  - Deafness [Not Recovered/Not Resolved]
